FAERS Safety Report 8544099-X (Version None)
Quarter: 2012Q3

REPORT INFORMATION
  Report Type: 
  Country: None (occurrence: None)
  Receive Date: 20120727
  Receipt Date: 20120723
  Transmission Date: 20120928
  Serious: Yes (Hospitalization)
  Sender: FDA-Public Use
  Company Number: US-PFIZER INC-2012177623

PATIENT
  Sex: Female

DRUGS (5)
  1. NEURONTIN [Suspect]
     Dosage: UNK
  2. XALATAN [Suspect]
     Dosage: UNK
  3. LIPITOR [Suspect]
     Dosage: UNK
  4. PROTONIX [Suspect]
     Dosage: UNK
  5. PRILOSEC [Suspect]
     Dosage: UNK

REACTIONS (5)
  - SURGERY [None]
  - PAIN [None]
  - PALPITATIONS [None]
  - CONFUSIONAL STATE [None]
  - FEELING ABNORMAL [None]
